FAERS Safety Report 20510550 (Version 4)
Quarter: 2023Q1

REPORT INFORMATION
  Report Type: Other
  Country: DE (occurrence: None)
  Receive Date: 20220224
  Receipt Date: 20230110
  Transmission Date: 20230417
  Serious: Yes (Other)
  Sender: FDA-Public Use
  Company Number: DE-ROCHE-2573131

PATIENT
  Sex: Female
  Weight: 68 kg

DRUGS (8)
  1. OCREVUS [Suspect]
     Active Substance: OCRELIZUMAB
     Indication: Relapsing-remitting multiple sclerosis
     Dosage: 215 DAYS, 175 DAYS
     Route: 042
     Dates: start: 20180901
  2. OCREVUS [Suspect]
     Active Substance: OCRELIZUMAB
     Route: 042
     Dates: start: 20200603
  3. OCREVUS [Suspect]
     Active Substance: OCRELIZUMAB
     Dosage: 322 DAYS
     Route: 042
     Dates: start: 20210421
  4. OCREVUS [Suspect]
     Active Substance: OCRELIZUMAB
     Route: 042
     Dates: start: 20190801
  5. MAGNESIUM [Concomitant]
     Active Substance: MAGNESIUM
  6. ACETAMINOPHEN [Concomitant]
     Active Substance: ACETAMINOPHEN
  7. IBUPROFEN [Concomitant]
     Active Substance: IBUPROFEN
  8. ACETAMINOPHEN [Concomitant]
     Active Substance: ACETAMINOPHEN

REACTIONS (28)
  - Urinary retention [Recovered/Resolved]
  - Dizziness [Recovering/Resolving]
  - Gastroenteritis [Recovered/Resolved]
  - Cystitis [Recovered/Resolved]
  - Joint stiffness [Recovered/Resolved]
  - Arthralgia [Recovering/Resolving]
  - Paraesthesia [Recovered/Resolved]
  - Joint instability [Recovered/Resolved]
  - Tendonitis [Recovered/Resolved]
  - B-lymphocyte count decreased [Not Recovered/Not Resolved]
  - Nausea [Recovered/Resolved]
  - Injection site pain [Recovered/Resolved]
  - Depressed mood [Recovered/Resolved]
  - Headache [Recovered/Resolved]
  - Presyncope [Recovered/Resolved]
  - Weight increased [Not Recovered/Not Resolved]
  - Infection [Not Recovered/Not Resolved]
  - Urinary tract infection [Recovering/Resolving]
  - Hypoaesthesia [Recovered/Resolved]
  - COVID-19 [Unknown]
  - COVID-19 [Unknown]
  - Nasal congestion [Recovered/Resolved]
  - Magnetic resonance imaging head abnormal [Not Recovered/Not Resolved]
  - Vomiting [Recovered/Resolved]
  - Sensory disturbance [Recovering/Resolving]
  - SARS-CoV-2 antibody test negative [Recovered/Resolved]
  - Infection susceptibility increased [Recovered/Resolved]
  - Fatigue [Recovered/Resolved]

NARRATIVE: CASE EVENT DATE: 20180901
